APPROVED DRUG PRODUCT: RENOVUE-DIP
Active Ingredient: IODAMIDE MEGLUMINE
Strength: 24%
Dosage Form/Route: INJECTABLE;INJECTION
Application: N017903 | Product #001
Applicant: BRACCO DIAGNOSTICS INC
Approved: Approved Prior to Jan 1, 1982 | RLD: No | RS: No | Type: DISCN